FAERS Safety Report 5300351-2 (Version None)
Quarter: 2007Q2

REPORT INFORMATION
  Report Type: 
  Country: None (occurrence: None)
  Receive Date: 20070413
  Receipt Date: 20070413
  Transmission Date: 20071010
  Serious: Yes (Hospitalization)
  Sender: FDA-Public Use
  Company Number: None

PATIENT
  Age: 61 Year
  Sex: Male
  Weight: 61.2356 kg

DRUGS (1)
  1. CAPECITABINE [Suspect]
     Indication: SQUAMOUS CELL CARCINOMA
     Dosage: 1800MG Q12H PO
     Route: 048
     Dates: start: 20070203, end: 20070204

REACTIONS (2)
  - NAUSEA [None]
  - VOMITING [None]
